FAERS Safety Report 8170995-1 (Version None)
Quarter: 2012Q1

REPORT INFORMATION
  Report Type: 
  Country: None (occurrence: None)
  Receive Date: 20120228
  Receipt Date: 20120217
  Transmission Date: 20120608
  Serious: Yes (Hospitalization)
  Sender: FDA-Public Use
  Company Number: US-JNJFOC-20120209050

PATIENT
  Sex: Male
  Weight: 49.8 kg

DRUGS (5)
  1. PREDNISONE TAB [Concomitant]
  2. REMICADE [Suspect]
     Indication: COLITIS ULCERATIVE
     Route: 042
     Dates: start: 20111102
  3. ERGOCALCIFEROL [Concomitant]
  4. FERROUS SULFATE TAB [Concomitant]
  5. PREVACID [Concomitant]

REACTIONS (1)
  - COLITIS ULCERATIVE [None]
